FAERS Safety Report 10486179 (Version 1)
Quarter: 2014Q4

REPORT INFORMATION
  Report Type: Spontaneous
  Country: IE (occurrence: IE)
  Receive Date: 20141001
  Receipt Date: 20141001
  Transmission Date: 20150528
  Serious: Yes (Hospitalization)
  Sender: FDA-Public Use
  Company Number: IE-JNJFOC-20140924927

PATIENT
  Sex: Female

DRUGS (9)
  1. ONBREZ [Concomitant]
     Active Substance: INDACATEROL
  2. COMBIVENT [Concomitant]
     Active Substance: ALBUTEROL SULFATE\IPRATROPIUM BROMIDE
  3. LUSTRAL [Concomitant]
     Active Substance: SERTRALINE HYDROCHLORIDE
  4. FOLIC ACID. [Concomitant]
     Active Substance: FOLIC ACID
  5. BURINEX [Concomitant]
     Active Substance: BUMETANIDE
  6. SIMPONI [Suspect]
     Active Substance: GOLIMUMAB
     Indication: PSORIATIC ARTHROPATHY
     Route: 058
     Dates: start: 20140731
  7. VERSATIS [Concomitant]
     Active Substance: LIDOCAINE
  8. LYRICA [Concomitant]
     Active Substance: PREGABALIN
  9. XANAX [Concomitant]
     Active Substance: ALPRAZOLAM

REACTIONS (1)
  - Lower respiratory tract infection [Unknown]
